FAERS Safety Report 13643789 (Version 2)
Quarter: 2017Q2

REPORT INFORMATION
  Report Type: Spontaneous
  Country: FR (occurrence: FR)
  Receive Date: 20170612
  Receipt Date: 20170619
  Transmission Date: 20170830
  Serious: Yes (Hospitalization)
  Sender: FDA-Public Use
  Company Number: FR-TEVA-775629ROM

PATIENT
  Age: 33 Year
  Sex: Female

DRUGS (8)
  1. VINCRISTINE TEVA [Suspect]
     Active Substance: VINCRISTINE
     Indication: ACUTE LEUKAEMIA
     Dosage: 2 MILLIGRAM DAILY;
     Route: 042
     Dates: start: 20170421, end: 20170512
  2. MIDAZOLAM [Suspect]
     Active Substance: MIDAZOLAM HYDROCHLORIDE
     Indication: ANXIETY
     Route: 042
     Dates: start: 20170419, end: 20170519
  3. ENDOXAN [Suspect]
     Active Substance: CYCLOPHOSPHAMIDE
     Indication: ACUTE LEUKAEMIA
     Dosage: 1400 MILLIGRAM DAILY;
     Route: 042
     Dates: start: 20170421, end: 20170505
  4. FLUOXETINE ARROW [Suspect]
     Active Substance: FLUOXETINE HYDROCHLORIDE
     Indication: DEPRESSION
     Dosage: 20 MILLIGRAM DAILY;
     Route: 048
     Dates: start: 20170429, end: 20170519
  5. MESNA EG [Suspect]
     Active Substance: MESNA
     Indication: PROPHYLAXIS
     Dosage: 1600 MILLIGRAM DAILY;
     Route: 041
     Dates: start: 20170421, end: 20170505
  6. NEFOPAM MEDISOL 20 MG/2 ML [Suspect]
     Active Substance: NEFOPAM HYDROCHLORIDE
     Indication: ANALGESIC INTERVENTION SUPPORTIVE THERAPY
     Route: 042
     Dates: start: 20170419, end: 20170511
  7. KIDROLASE 10 000 UI [Suspect]
     Active Substance: ASPARAGINASE
     Indication: ACUTE LEUKAEMIA
     Dosage: 11220 IU (INTERNATIONAL UNIT) DAILY;
     Route: 041
     Dates: start: 20170428, end: 20170512
  8. CERUBIDINE [Suspect]
     Active Substance: DAUNORUBICIN HYDROCHLORIDE
     Indication: ACUTE LEUKAEMIA
     Dosage: 92.5 MILLIGRAM DAILY;
     Route: 042
     Dates: start: 20170505, end: 20170506

REACTIONS (1)
  - Hepatic steatosis [Recovering/Resolving]

NARRATIVE: CASE EVENT DATE: 20170507
